FAERS Safety Report 15657460 (Version 1)
Quarter: 2018Q4

REPORT INFORMATION
  Report Type: Spontaneous
  Country: US (occurrence: US)
  Receive Date: 20181126
  Receipt Date: 20181126
  Transmission Date: 20190205
  Serious: Yes (Hospitalization)
  Sender: FDA-Public Use
  Company Number: None

PATIENT
  Age: 18 Year
  Sex: Male

DRUGS (1)
  1. LUPRON [Suspect]
     Active Substance: LEUPROLIDE ACETATE
     Indication: PROSTATE CANCER
     Dosage: 30 MG EVERY 12 WEEKS; INTRAMUSCULAR?
     Route: 030
     Dates: start: 20180831

REACTIONS (1)
  - Substance use [None]

NARRATIVE: CASE EVENT DATE: 20181121
